FAERS Safety Report 18388763 (Version 1)
Quarter: 2020Q4

REPORT INFORMATION
  Report Type: Report from Study
  Country: US (occurrence: US)
  Receive Date: 20201015
  Receipt Date: 20201015
  Transmission Date: 20210114
  Serious: Yes (Other)
  Sender: FDA-Public Use
  Company Number: US-BRISTOL-MYERS SQUIBB COMPANY-BMS-2020-083797

PATIENT
  Sex: Male

DRUGS (1)
  1. APIXABAN [Suspect]
     Active Substance: APIXABAN
     Indication: CORONARY ARTERY BYPASS
     Route: 065

REACTIONS (4)
  - Device power source issue [Unknown]
  - Device dislocation [Unknown]
  - Intentional product use issue [Unknown]
  - Cardiac disorder [Unknown]
